FAERS Safety Report 6099991-5 (Version None)
Quarter: 2009Q1

REPORT INFORMATION
  Report Type: 
  Country: None (occurrence: None)
  Receive Date: 20090303
  Receipt Date: 20090224
  Transmission Date: 20090719
  Serious: Yes (Death, Hospitalization, Congenital Anomaly)
  Sender: FDA-Public Use
  Company Number: A0752264A

PATIENT
  Sex: Male

DRUGS (10)
  1. PAXIL [Suspect]
     Indication: DEPRESSION
     Dates: start: 19970101, end: 20050101
  2. VICODIN [Concomitant]
  3. TOPAMAX [Concomitant]
     Dosage: 100MG PER DAY
  4. BEXTRA [Concomitant]
     Dosage: 20MG AS REQUIRED
  5. BACLOFEN [Concomitant]
     Dosage: 10MG THREE TIMES PER DAY
  6. LIDODERM [Concomitant]
  7. BUSPAR [Concomitant]
  8. ZOFRAN [Concomitant]
  9. ZYDONE [Concomitant]
  10. VITAMIN TAB [Concomitant]

REACTIONS (20)
  - ABDOMINAL DISTENSION [None]
  - ACIDOSIS [None]
  - AORTIC STENOSIS [None]
  - ASTHMA [None]
  - ATRIAL SEPTAL DEFECT [None]
  - BRADYCARDIA NEONATAL [None]
  - CARDIAC ARREST NEONATAL [None]
  - COAGULOPATHY [None]
  - CONVULSION [None]
  - DEATH [None]
  - DRUG EXPOSURE DURING PREGNANCY [None]
  - ECCHYMOSIS [None]
  - GENERAL PHYSICAL HEALTH DETERIORATION [None]
  - HYPOPLASTIC LEFT HEART SYNDROME [None]
  - LUNG DISORDER [None]
  - MITRAL VALVE STENOSIS [None]
  - MULTIPLE CONGENITAL ABNORMALITIES [None]
  - NECROTISING ENTEROCOLITIS NEONATAL [None]
  - NEONATAL HYPOTENSION [None]
  - OXYGEN SATURATION DECREASED [None]
